FAERS Safety Report 11534296 (Version 1)
Quarter: 2015Q3

REPORT INFORMATION
  Report Type: Other
  Country: IN (occurrence: IN)
  Receive Date: 20150922
  Receipt Date: 20150922
  Transmission Date: 20151125
  Serious: Yes (Other)
  Sender: FDA-Public Use
  Company Number: IN-LUPIN PHARMACEUTICALS INC.-2015-02852

PATIENT
  Age: 32 Year
  Sex: Male

DRUGS (10)
  1. ISONIAZID. [Concomitant]
     Active Substance: ISONIAZID
     Indication: PLEURAL EFFUSION
     Dosage: 300 MG
     Route: 048
  2. RIFAMPICIN [Suspect]
     Active Substance: RIFAMPIN
     Indication: PLEURAL EFFUSION
     Dosage: 450 MG
     Route: 048
  3. PYRAZINAMIDE. [Suspect]
     Active Substance: PYRAZINAMIDE
     Dosage: 1500 MG
     Route: 048
  4. STREPTOMYCIN [Concomitant]
     Active Substance: STREPTOMYCIN\STREPTOMYCIN SULFATE
     Indication: PLEURAL EFFUSION
     Dosage: 0.75 GM
     Route: 030
  5. PYRAZINAMIDE. [Suspect]
     Active Substance: PYRAZINAMIDE
     Indication: PLEURAL EFFUSION
     Dosage: 1500 MG
     Route: 048
  6. ETHAMBUTOL [Concomitant]
     Active Substance: ETHAMBUTOL HYDROCHLORIDE
     Indication: PLEURAL EFFUSION
     Dosage: 800 MG
     Route: 048
  7. STREPTOMYCIN [Concomitant]
     Active Substance: STREPTOMYCIN\STREPTOMYCIN SULFATE
     Dosage: 0.75 GM
     Route: 030
  8. ETHAMBUTOL [Concomitant]
     Active Substance: ETHAMBUTOL HYDROCHLORIDE
     Dosage: 800 MG
     Route: 048
  9. RIFAMPICIN [Suspect]
     Active Substance: RIFAMPIN
     Route: 048
  10. ISONIAZID. [Concomitant]
     Active Substance: ISONIAZID
     Dosage: 300 MG
     Route: 048

REACTIONS (2)
  - Blister [Recovered/Resolved]
  - Thrombocytopenia [Recovered/Resolved]
